FAERS Safety Report 6788409-2 (Version None)
Quarter: 2010Q2

REPORT INFORMATION
  Report Type: 
  Country: None (occurrence: None)
  Receive Date: 20100623
  Receipt Date: 20080229
  Transmission Date: 20101027
  Serious: No
  Sender: FDA-Public Use
  Company Number: US-PFIZER INC-2008019355

PATIENT
  Sex: Female
  Weight: 59.545 kg

DRUGS (2)
  1. DIFLUCAN [Suspect]
     Indication: FUNGAL INFECTION
     Dates: start: 20080118, end: 20080122
  2. ERYTHROMYCIN [Concomitant]

REACTIONS (1)
  - RASH [None]
